FAERS Safety Report 4871275-X (Version None)
Quarter: 2005Q4

REPORT INFORMATION
  Report Type: 
  Country: None (occurrence: None)
  Receive Date: 20051229
  Receipt Date: 20051216
  Transmission Date: 20060501
  Serious: Yes (Other)
  Sender: FDA-Public Use
  Company Number: 2005170125

PATIENT
  Sex: Male

DRUGS (2)
  1. VIAGRA [Suspect]
     Indication: ILL-DEFINED DISORDER
  2. ASTROGLIDE (GLYCEROL, METHYLPARABEN E218, N- (3-CHLOROALLYL) HEXAMINIU [Suspect]
     Indication: ILL-DEFINED DISORDER

REACTIONS (6)
  - ABNORMAL BEHAVIOUR [None]
  - DEPRESSION [None]
  - HYPOAESTHESIA [None]
  - MALAISE [None]
  - PARTNER STRESS [None]
  - THINKING ABNORMAL [None]
